FAERS Safety Report 14547321 (Version 2)
Quarter: 2018Q3

REPORT INFORMATION
  Report Type: Spontaneous
  Country: US (occurrence: US)
  Receive Date: 20180219
  Receipt Date: 20180802
  Transmission Date: 20181010
  Serious: Yes (Hospitalization)
  Sender: FDA-Public Use
  Company Number: US-BTG INTERNATIONAL LTD-2018BTG01498

PATIENT
  Age: 68 Year
  Sex: Male

DRUGS (1)
  1. CROFAB [Suspect]
     Active Substance: CROTALIDAE POLYVALENT IMMUNE FAB (OVINE)
     Indication: SNAKE BITE
     Dosage: MEDIAN OF 10.5 VIALS

REACTIONS (2)
  - Coagulopathy [Unknown]
  - Drug effect incomplete [Unknown]
